FAERS Safety Report 7642087-9 (Version None)
Quarter: 2011Q3

REPORT INFORMATION
  Report Type: 
  Country: None (occurrence: None)
  Receive Date: 20110728
  Receipt Date: 20110720
  Transmission Date: 20111222
  Serious: Yes (Hospitalization, Other)
  Sender: FDA-Public Use
  Company Number: US-ELI_LILLY_AND_COMPANY-US201102000036

PATIENT
  Sex: Female

DRUGS (6)
  1. TRACLEER [Concomitant]
  2. REMODULIN [Concomitant]
     Dosage: UNK
     Route: 055
     Dates: start: 20101001, end: 20110101
  3. ADCIRCA [Suspect]
     Indication: PULMONARY ARTERIAL HYPERTENSION
     Dosage: 40 MG, DAILY (1/D)
     Route: 048
  4. REMODULIN [Concomitant]
     Indication: PULMONARY ARTERIAL HYPERTENSION
     Dosage: UNK DF, UNK
     Route: 042
     Dates: end: 20101001
  5. LASIX [Concomitant]
  6. REMODULIN [Concomitant]
     Dosage: UNK
     Route: 042
     Dates: start: 20110101

REACTIONS (4)
  - SYNCOPE [None]
  - DISEASE PROGRESSION [None]
  - URINARY INCONTINENCE [None]
  - HEPATIC CONGESTION [None]
